FAERS Safety Report 24124341 (Version 2)
Quarter: 2024Q3

REPORT INFORMATION
  Report Type: Report from Study
  Country: US (occurrence: US)
  Receive Date: 20240723
  Receipt Date: 20240806
  Transmission Date: 20241017
  Serious: Yes (Hospitalization)
  Sender: ABBVIE
  Company Number: US-ABBVIE-5845058

PATIENT
  Age: 54 Year
  Sex: Male

DRUGS (1)
  1. ASACOL [Suspect]
     Active Substance: MESALAMINE
     Indication: Product used for unknown indication
     Dosage: ASACOL  HD
     Route: 048

REACTIONS (3)
  - Haemorrhage [Recovered/Resolved]
  - Therapeutic product effect decreased [Unknown]
  - Pain [Not Recovered/Not Resolved]
